FAERS Safety Report 7445987-8 (Version None)
Quarter: 2011Q2

REPORT INFORMATION
  Report Type: 
  Country: None (occurrence: None)
  Receive Date: 20110429
  Receipt Date: 20110425
  Transmission Date: 20111010
  Serious: Yes (Hospitalization)
  Sender: FDA-Public Use
  Company Number: US-ROXANE LABORATORIES, INC.-2011-RO-00565RO

PATIENT
  Sex: Female

DRUGS (2)
  1. IPRATROPIUM BROMIDE [Suspect]
     Indication: PNEUMONIA
     Dates: end: 20110101
  2. FUROSEMIDE [Suspect]
     Dosage: 60 MG
     Route: 048

REACTIONS (3)
  - BLINDNESS TRANSIENT [None]
  - PNEUMONIA [None]
  - OEDEMA [None]
